FAERS Safety Report 7126276-8 (Version None)
Quarter: 2010Q4

REPORT INFORMATION
  Report Type: 
  Country: None (occurrence: None)
  Receive Date: 20101129
  Receipt Date: 20101117
  Transmission Date: 20110411
  Serious: Yes (Hospitalization, Other)
  Sender: FDA-Public Use
  Company Number: US-JNJFOC-20100504159

PATIENT
  Sex: Female

DRUGS (4)
  1. LEVAQUIN [Suspect]
     Indication: RESPIRATORY TRACT INFECTION
     Route: 048
  2. METHYLPREDNISOLONE [Suspect]
     Indication: INFECTION
     Route: 065
  3. METHYLPREDNISOLONE [Suspect]
     Route: 065
  4. PREDNISONE [Suspect]
     Indication: INFECTION
     Route: 065

REACTIONS (5)
  - BURSITIS [None]
  - ROTATOR CUFF SYNDROME [None]
  - SYNOVITIS [None]
  - TENDONITIS [None]
  - TENOSYNOVITIS [None]
